FAERS Safety Report 15368817 (Version 1)
Quarter: 2018Q3

REPORT INFORMATION
  Report Type: Report from Study
  Country: IT (occurrence: IT)
  Receive Date: 20180911
  Receipt Date: 20180911
  Transmission Date: 20181010
  Serious: Yes (Other)
  Sender: FDA-Public Use
  Company Number: IT-BAXTER-2018BAX023225

PATIENT
  Age: 75 Year
  Sex: Female
  Weight: 70 kg

DRUGS (5)
  1. URBASON SOLUBLE [Concomitant]
     Indication: PREMEDICATION
     Route: 042
     Dates: start: 20180622, end: 20180622
  2. VINCRISTINE TEVA [Suspect]
     Active Substance: VINCRISTINE
     Indication: NON-HODGKIN^S LYMPHOMA
     Dosage: DOSAGE FORM: INJECTABLE SOLUTION
     Route: 040
     Dates: start: 20180622, end: 20180622
  3. ENDOXAN BAXTER [Suspect]
     Active Substance: CYCLOPHOSPHAMIDE
     Indication: NON-HODGKIN^S LYMPHOMA UNSPECIFIED HISTOLOGY AGGRESSIVE
     Dosage: POWDER FOR INJECTABLE SOLUTION
     Route: 042
     Dates: start: 20180622, end: 20180622
  4. GRANISETRON HIKMA [Concomitant]
     Indication: PREMEDICATION
     Route: 042
     Dates: start: 20180622, end: 20180622
  5. ADRIBLASTINE [Suspect]
     Active Substance: DOXORUBICIN
     Indication: NON-HODGKIN^S LYMPHOMA
     Dosage: DOSAGE FORM: INJECTABLE SOLUTION FOR INTRAVENOUS USE, STRENGTH: 50 MG/25 ML
     Route: 042
     Dates: start: 20180622, end: 20180622

REACTIONS (3)
  - Hypernatraemia [Recovering/Resolving]
  - Hypercreatininaemia [Recovering/Resolving]
  - Leukopenia [Recovering/Resolving]

NARRATIVE: CASE EVENT DATE: 20180703
